FAERS Safety Report 17563924 (Version 1)
Quarter: 2020Q1

REPORT INFORMATION
  Report Type: Spontaneous
  Country: US (occurrence: US)
  Receive Date: 20200320
  Receipt Date: 20200320
  Transmission Date: 20200409
  Serious: No
  Sender: FDA-Public Use
  Company Number: US-DRREDDYS-USA/USA/20/0120449

PATIENT
  Age: 74 Year
  Sex: Male
  Weight: 94.5 kg

DRUGS (4)
  1. SIROLIMUS. [Suspect]
     Active Substance: SIROLIMUS
     Indication: IMMUNOSUPPRESSION
     Route: 048
     Dates: start: 20191218
  2. IMURAN [Concomitant]
     Active Substance: AZATHIOPRINE
     Indication: PRODUCT USED FOR UNKNOWN INDICATION
     Route: 065
  3. PROGRAF [Concomitant]
     Active Substance: TACROLIMUS
     Indication: PRODUCT USED FOR UNKNOWN INDICATION
     Dosage: 1.5 MG IN THE MORNING AND A 1 MG AT NIGHT
     Route: 065
  4. PROGRAF [Concomitant]
     Active Substance: TACROLIMUS
     Dosage: 1.5 MG IN THE MORNING AND A 1 MG AT NIGHT
     Route: 065

REACTIONS (3)
  - Gait inability [Unknown]
  - Blood creatinine increased [Unknown]
  - Peripheral swelling [Unknown]
